FAERS Safety Report 6762223-6 (Version None)
Quarter: 2010Q2

REPORT INFORMATION
  Report Type: 
  Country: None (occurrence: None)
  Receive Date: 20100609
  Receipt Date: 20100527
  Transmission Date: 20101027
  Serious: Yes (Other)
  Sender: FDA-Public Use
  Company Number: PHHY2010MX34739

PATIENT

DRUGS (1)
  1. ZOMETA [Suspect]
     Dosage: 4 MG/5ML, UNK
     Route: 042

REACTIONS (1)
  - ARRHYTHMIA [None]
